FAERS Safety Report 7542991-6 (Version None)
Quarter: 2011Q2

REPORT INFORMATION
  Report Type: 
  Country: None (occurrence: None)
  Receive Date: 20110613
  Receipt Date: 20110531
  Transmission Date: 20111010
  Serious: No
  Sender: FDA-Public Use
  Company Number: PHHY2011US47434

PATIENT
  Age: 45 Year
  Sex: Male

DRUGS (6)
  1. TASIGNA [Suspect]
     Indication: CHRONIC MYELOID LEUKAEMIA
     Dosage: 400 MG, BID
     Route: 048
     Dates: start: 20100826
  2. MIRALAX [Concomitant]
  3. HYDROCORTISONE [Concomitant]
  4. TOPROL-XL [Concomitant]
  5. HYDROXYZINE [Concomitant]
  6. LUBRIDERM [Concomitant]

REACTIONS (3)
  - CONSTIPATION [None]
  - PRURITUS [None]
  - RASH [None]
